FAERS Safety Report 4565275-7 (Version None)
Quarter: 2005Q1

REPORT INFORMATION
  Report Type: 
  Country: None (occurrence: None)
  Receive Date: 20050121
  Receipt Date: 20050110
  Transmission Date: 20050727
  Serious: Yes (Other)
  Sender: FDA-Public Use
  Company Number: HWQYE470310JAN05

PATIENT
  Age: 34 Year

DRUGS (3)
  1. BENEFIX [Suspect]
     Indication: FACTOR IX DEFICIENCY
     Dosage: ONE DOSE 250 IE
  2. NORVIR [Concomitant]
  3. COMBIVIR [Concomitant]

REACTIONS (1)
  - HAEMORRHAGE INTRACRANIAL [None]
